FAERS Safety Report 5924700-7 (Version None)
Quarter: 2008Q4

REPORT INFORMATION
  Report Type: 
  Country: None (occurrence: None)
  Receive Date: 20081016
  Receipt Date: 20081008
  Transmission Date: 20090506
  Serious: Yes (Hospitalization)
  Sender: FDA-Public Use
  Company Number: 2008JP004142

PATIENT
  Sex: Female

DRUGS (9)
  1. VESICARE [Suspect]
     Indication: HYPERTONIC BLADDER
     Dosage: 5 MG, UID/QD, ORAL
     Route: 048
     Dates: start: 20070607, end: 20080514
  2. EVISTA (RALOXIFENE HYDROCHLORIDE) PER ORAL NOS [Concomitant]
  3. PARIET (RABEPRAZOLE SODIUM) PER ORAL NOS [Concomitant]
  4. GASMOTIN (MOSAPRIDE CITRATE) PER ORAL NOS [Concomitant]
  5. ITOROL (ISOSORBIDE MONONITRATE) PER ORAL NOS [Concomitant]
  6. KIPRES (MONTELUKAST SODIUM) PER ORAL NOS [Concomitant]
  7. TANATRIL (IMIDAPRIL HYDROCHLORIDE) PER ORAL NOS [Concomitant]
  8. BLOPRESS (CANDESARTAN CILEXETIL) PER ORAL NOS [Concomitant]
  9. KETAS (IBUDILAST) PER ORAL NOS [Concomitant]

REACTIONS (8)
  - ANOREXIA [None]
  - ASTHENIA [None]
  - CEREBRAL INFARCTION [None]
  - COGNITIVE DISORDER [None]
  - CONSTIPATION [None]
  - DEHYDRATION [None]
  - FALL [None]
  - VOMITING [None]
